FAERS Safety Report 12573485 (Version 1)
Quarter: 2016Q3

REPORT INFORMATION
  Report Type: Spontaneous
  Country: US (occurrence: None)
  Receive Date: 20160719
  Receipt Date: 20160719
  Transmission Date: 20161109
  Serious: Yes (Disabling)
  Sender: FDA-Public Use
  Company Number: None

PATIENT
  Age: 84 Year
  Sex: Female
  Weight: 58.06 kg

DRUGS (7)
  1. LEVOTHYROXINE. [Concomitant]
     Active Substance: LEVOTHYROXINE
  2. LORATADINE. [Concomitant]
     Active Substance: LORATADINE
  3. LEVOFLOXACIN 500 MG [Suspect]
     Active Substance: LEVOFLOXACIN
     Indication: SINUSITIS
     Dosage: 500 MG, 10 TABLETS, ONCE DAILY, BY MOUTH
     Route: 048
     Dates: start: 20160118, end: 20160127
  4. DIPHENHYDRAMINE HCL [Concomitant]
     Active Substance: DIPHENHYDRAMINE HYDROCHLORIDE
  5. BOTOX [Concomitant]
     Active Substance: ONABOTULINUMTOXINA
  6. TOVIAZ [Concomitant]
     Active Substance: FESOTERODINE FUMARATE
  7. PREMARIN [Concomitant]
     Active Substance: ESTROGENS, CONJUGATED

REACTIONS (2)
  - Mobility decreased [None]
  - Tendonitis [None]

NARRATIVE: CASE EVENT DATE: 20160127
